FAERS Safety Report 21531440 (Version 1)
Quarter: 2022Q4

REPORT INFORMATION
  Report Type: Spontaneous
  Country: US (occurrence: US)
  Receive Date: 20221031
  Receipt Date: 20221031
  Transmission Date: 20230113
  Serious: Yes (Other)
  Sender: FDA-Public Use
  Company Number: US-INCYTE CORPORATION-2022IN010409

PATIENT

DRUGS (3)
  1. JAKAFI [Suspect]
     Active Substance: RUXOLITINIB
     Indication: Iron metabolism disorder
     Dosage: 7.5 MILLIGRAM, BID
     Route: 048
  2. JAKAFI [Suspect]
     Active Substance: RUXOLITINIB
     Indication: Aplasia
  3. JAKAFI [Suspect]
     Active Substance: RUXOLITINIB
     Indication: Aplasia pure red cell

REACTIONS (3)
  - Bone marrow disorder [Unknown]
  - Wrong technique in product usage process [Unknown]
  - Off label use [Unknown]
